FAERS Safety Report 8765931 (Version 1)
Quarter: 2012Q4

REPORT INFORMATION
  Report Type: 
  Country: GB (occurrence: GB)
  Receive Date: 20120904
  Receipt Date: 20120904
  Transmission Date: 20130627
  Serious: Yes (Other)
  Sender: FDA-Public Use
  Company Number: GB-WATSON-2012-15371

PATIENT
  Age: 68 Year
  Sex: Female

DRUGS (2)
  1. GABAPENTIN (UNKNOWN) [Suspect]
     Indication: PRODUCT USED FOR UNKNOWN INDICATION
     Dosage: 300 mg, tid
     Route: 065
  2. NEURONTIN [Suspect]
     Indication: PRODUCT USED FOR UNKNOWN INDICATION
     Dosage: unk

REACTIONS (7)
  - Bone cancer [Unknown]
  - Haemorrhagic stroke [Unknown]
  - Renal failure acute [Unknown]
  - Confusional state [Unknown]
  - Hemiplegia [Unknown]
  - Speech disorder [Unknown]
  - Circumstance or information capable of leading to medication error [Unknown]
